FAERS Safety Report 9721044 (Version 3)
Quarter: 2014Q1

REPORT INFORMATION
  Report Type: Spontaneous
  Country: US (occurrence: US)
  Receive Date: 20131129
  Receipt Date: 20140205
  Transmission Date: 20141002
  Serious: No
  Sender: FDA-Public Use
  Company Number: US-PFIZER INC-2013336297

PATIENT
  Sex: Male

DRUGS (1)
  1. ADVIL [Suspect]
     Indication: PAIN
     Dosage: 200 MG, UNK

REACTIONS (4)
  - Poor quality drug administered [Unknown]
  - Rash [Unknown]
  - Hypersensitivity [Unknown]
  - Product physical issue [Unknown]
